FAERS Safety Report 6510260-9 (Version None)
Quarter: 2009Q4

REPORT INFORMATION
  Report Type: 
  Country: None (occurrence: None)
  Receive Date: 20091222
  Receipt Date: 20091210
  Transmission Date: 20100525
  Serious: Yes (Other)
  Sender: FDA-Public Use
  Company Number: GB-CELGENEUS-167-20785-09121167

PATIENT
  Age: 58 Year
  Sex: Female

DRUGS (2)
  1. THALIDOMIDE [Suspect]
     Route: 048
  2. DEXAMETHASONE TAB [Concomitant]
     Indication: DRUG USE FOR UNKNOWN INDICATION
     Route: 065

REACTIONS (2)
  - FRACTURE [None]
  - NO THERAPEUTIC RESPONSE [None]
